FAERS Safety Report 8416656-2 (Version None)
Quarter: 2012Q2

REPORT INFORMATION
  Report Type: 
  Country: None (occurrence: None)
  Receive Date: 20120606
  Receipt Date: 20120531
  Transmission Date: 20120825
  Serious: Yes (Other)
  Sender: FDA-Public Use
  Company Number: US-ALEXION-A201200013

PATIENT
  Sex: Male
  Weight: 76 kg

DRUGS (11)
  1. REGLAN [Concomitant]
     Indication: NAUSEA
     Dosage: 10 MG, QID
     Route: 048
     Dates: start: 20120525
  2. PREDNISONE TAB [Concomitant]
     Dosage: 20 MG, QD
     Route: 048
  3. CARTIA XT [Concomitant]
     Dosage: 180 MG, UNK
  4. LANTUS [Concomitant]
     Dosage: UNK
  5. IRON W/FOLIC ACID [Concomitant]
     Dosage: UNK
  6. DRISDOL [Concomitant]
     Dosage: 5000 IU, UNK
  7. REGLAN [Concomitant]
     Indication: DYSPEPSIA
  8. PREDNISONE TAB [Concomitant]
     Dosage: 10 MG, BID
     Route: 048
  9. SOLIRIS [Suspect]
     Indication: PAROXYSMAL NOCTURNAL HAEMOGLOBINURIA
     Dosage: 900 MG, Q2W
     Route: 042
     Dates: start: 20070831
  10. RESTORIL [Concomitant]
     Dosage: 30 MG, UNK
  11. PRILOSEC [Concomitant]
     Dosage: 40 MG, UNK

REACTIONS (3)
  - HEPATIC CYST [None]
  - BENIGN PANCREATIC NEOPLASM [None]
  - PNEUMOBILIA [None]
